FAERS Safety Report 5195233-3 (Version None)
Quarter: 2006Q4

REPORT INFORMATION
  Report Type: 
  Country: None (occurrence: None)
  Receive Date: 20061229
  Receipt Date: 20061219
  Transmission Date: 20070319
  Serious: Yes (Hospitalization)
  Sender: FDA-Public Use
  Company Number: FR-MERCK-0612FRA00090

PATIENT
  Age: 49 Year
  Sex: Female

DRUGS (4)
  1. CANCIDAS [Suspect]
     Indication: BRONCHOPULMONARY ASPERGILLOSIS
     Route: 041
  2. CANCIDAS [Suspect]
     Route: 041
  3. CANCIDAS [Suspect]
     Route: 042
  4. CORTICOSTEROIDS (UNSPECIFIED) [Concomitant]
     Indication: LIVER TRANSPLANT
     Route: 048

REACTIONS (2)
  - CYTOMEGALOVIRUS COLITIS [None]
  - DRUG INEFFECTIVE [None]
